FAERS Safety Report 5131619-0 (Version None)
Quarter: 2006Q4

REPORT INFORMATION
  Report Type: 
  Country: None (occurrence: None)
  Receive Date: 20061020
  Receipt Date: 20061009
  Transmission Date: 20070319
  Serious: Yes (Hospitalization)
  Sender: FDA-Public Use
  Company Number: GB-BRISTOL-MYERS SQUIBB COMPANY-13543129

PATIENT
  Age: 69 Year
  Sex: Female

DRUGS (5)
  1. CETUXIMAB [Suspect]
     Indication: COLORECTAL CANCER
     Route: 042
     Dates: start: 20060905
  2. KYTRIL [Concomitant]
     Route: 042
     Dates: start: 20060905, end: 20060905
  3. ZANTAC [Concomitant]
     Route: 048
     Dates: start: 20060905, end: 20060905
  4. ACETAMINOPHEN [Concomitant]
     Route: 048
     Dates: start: 20060905
  5. PIRITON [Concomitant]
     Route: 048
     Dates: start: 20060905

REACTIONS (1)
  - CIRCULATORY COLLAPSE [None]
